FAERS Safety Report 19084111 (Version 1)
Quarter: 2021Q2

REPORT INFORMATION
  Report Type: Report from Study
  Country: IT (occurrence: IT)
  Receive Date: 20210401
  Receipt Date: 20210401
  Transmission Date: 20210717
  Serious: Yes (Hospitalization)
  Sender: FDA-Public Use
  Company Number: IT-PUMA BIOTECHNOLOGY, LTD.-2021IT002619

PATIENT
  Sex: Female
  Weight: 57 kg

DRUGS (7)
  1. LYRICA [Concomitant]
     Active Substance: PREGABALIN
     Indication: PAIN
     Dosage: 2 DF DAILY
     Route: 065
     Dates: start: 20190314
  2. LANSOPRAZOLE. [Concomitant]
     Active Substance: LANSOPRAZOLE
     Indication: PROPHYLAXIS
     Dosage: 1 DF DAILY
     Route: 065
     Dates: start: 20200212
  3. PROPYCIL [Concomitant]
     Active Substance: PROPYLTHIOURACIL
     Indication: THYROID DISORDER
     Dosage: 2 DF DAILY
     Route: 065
     Dates: start: 20190314
  4. DIBASE [Concomitant]
     Active Substance: CHOLECALCIFEROL
     Indication: VITAMIN SUPPLEMENTATION
     Dosage: 1 FL PER WEEK
     Route: 065
     Dates: start: 20210128
  5. NERATINIB [Suspect]
     Active Substance: NERATINIB
     Indication: PRODUCT USED FOR UNKNOWN INDICATION
     Dosage: UNK
     Route: 065
  6. DELORAZEPAM [Concomitant]
     Active Substance: DELORAZEPAM
     Indication: ANXIETY
     Dosage: 10?15 DROPS AS NEEDED
     Route: 065
     Dates: start: 20200623
  7. NERATINIB [Suspect]
     Active Substance: NERATINIB
     Dosage: UNK
     Route: 065
     Dates: start: 20210311

REACTIONS (2)
  - Chronic obstructive pulmonary disease [Recovering/Resolving]
  - COVID-19 [Recovered/Resolved]
